FAERS Safety Report 25825785 (Version 1)
Quarter: 2025Q3

REPORT INFORMATION
  Report Type: Spontaneous
  Country: EU (occurrence: EU)
  Receive Date: 20250919
  Receipt Date: 20250919
  Transmission Date: 20251021
  Serious: Yes (Hospitalization, Other)
  Sender: MYLAN
  Company Number: EU-BRISTOL-MYERS SQUIBB COMPANY-2025-124197

PATIENT
  Age: 72 Year
  Sex: Male

DRUGS (2)
  1. APIXABAN [Suspect]
     Active Substance: APIXABAN
     Indication: Atrial fibrillation
     Dosage: 2.5 MILLIGRAM, BID (EVERY 0.5 DAYS)
  2. APIXABAN [Suspect]
     Active Substance: APIXABAN

REACTIONS (2)
  - Cerebrovascular accident [Recovered/Resolved]
  - Off label use [Unknown]
